FAERS Safety Report 9820157 (Version 1)
Quarter: 2013Q4

REPORT INFORMATION
  Report Type: Spontaneous
  Country: TR (occurrence: None)
  Receive Date: 20131022
  Receipt Date: 20131022
  Transmission Date: 20140711
  Serious: Yes (Hospitalization)
  Sender: FDA-Public Use
  Company Number: 2013-01659

PATIENT
  Age: 50 Year
  Sex: Female

DRUGS (1)
  1. FENOFIBRATE [Suspect]
     Indication: BLOOD CHOLESTEROL INCREASED

REACTIONS (2)
  - Rhabdomyolysis [None]
  - Renal failure acute [None]
